FAERS Safety Report 14488235 (Version 1)
Quarter: 2018Q1

REPORT INFORMATION
  Report Type: Spontaneous
  Country: US (occurrence: US)
  Receive Date: 20180205
  Receipt Date: 20180205
  Transmission Date: 20180509
  Serious: No
  Sender: FDA-Public Use
  Company Number: US-009507513-1801USA006081

PATIENT
  Age: 14 Year
  Sex: Female

DRUGS (1)
  1. NEXPLANON [Suspect]
     Active Substance: ETONOGESTREL
     Dosage: 1 DF, UNK
     Route: 059
     Dates: start: 20180102

REACTIONS (4)
  - Implant site hypoaesthesia [Recovered/Resolved]
  - Implant site haematoma [Recovered/Resolved]
  - Implant site paraesthesia [Recovered/Resolved]
  - Drug administered to patient of inappropriate age [Unknown]

NARRATIVE: CASE EVENT DATE: 201801
